FAERS Safety Report 9661643 (Version 2)
Quarter: 2013Q4

REPORT INFORMATION
  Report Type: Spontaneous
  Country: US (occurrence: US)
  Receive Date: 20131031
  Receipt Date: 20131031
  Transmission Date: 20140711
  Serious: No
  Sender: FDA-Public Use
  Company Number: US-PURDUE-USA-2010-0055140

PATIENT
  Age: 46 Year
  Sex: Male
  Weight: 97.96 kg

DRUGS (2)
  1. OXYCONTIN (NDA 22-272) [Suspect]
     Indication: PAIN
     Dosage: 10 MG, TID
     Dates: start: 201009
  2. OXYCODONE HYDROCHLORIDE (SIMILAR TO NDA 20-553) [Suspect]
     Indication: BACK PAIN
     Dosage: 10 MG, TID
     Route: 048
     Dates: start: 20100923, end: 20101109

REACTIONS (6)
  - Myalgia [Recovered/Resolved]
  - Arthralgia [Recovered/Resolved]
  - Gastric ulcer [Not Recovered/Not Resolved]
  - Joint lock [Not Recovered/Not Resolved]
  - Back pain [Not Recovered/Not Resolved]
  - Dyspepsia [Recovered/Resolved]
